FAERS Safety Report 6239738-2 (Version None)
Quarter: 2009Q2

REPORT INFORMATION
  Report Type: 
  Country: None (occurrence: None)
  Receive Date: 20090619
  Receipt Date: 20090608
  Transmission Date: 20091009
  Serious: Yes (Life-Threatening)
  Sender: FDA-Public Use
  Company Number: ADR3642009

PATIENT
  Sex: Male

DRUGS (2)
  1. AMLODIPINE [Suspect]
     Indication: HYPERTENSION
     Dosage: 10 MG
     Dates: start: 20080515
  2. ASA 100 [Concomitant]

REACTIONS (2)
  - JAUNDICE [None]
  - TRANSAMINASES INCREASED [None]
